FAERS Safety Report 8119883-7 (Version None)
Quarter: 2012Q1

REPORT INFORMATION
  Report Type: 
  Country: None (occurrence: None)
  Receive Date: 20120207
  Receipt Date: 20120202
  Transmission Date: 20120608
  Serious: Yes (Hospitalization)
  Sender: FDA-Public Use
  Company Number: US-ASTRAZENECA-2010SE01524

PATIENT
  Sex: Female
  Weight: 86.2 kg

DRUGS (5)
  1. LEXAPRO [Concomitant]
     Dates: start: 20071219
  2. SEROQUEL [Suspect]
     Dosage: 50 MG TAKE 1/4
     Route: 048
     Dates: start: 20071219
  3. SEROQUEL [Suspect]
     Route: 048
     Dates: start: 20070730
  4. LAMICTAL [Concomitant]
     Dates: start: 20071219
  5. KLONOPIN [Concomitant]
     Dates: start: 20071219

REACTIONS (20)
  - ANAEMIA [None]
  - RESPIRATORY FAILURE [None]
  - ACIDOSIS [None]
  - RENAL FAILURE [None]
  - ROAD TRAFFIC ACCIDENT [None]
  - TIBIA FRACTURE [None]
  - OPEN WOUND [None]
  - SEPSIS [None]
  - RHABDOMYOLYSIS [None]
  - FEMUR FRACTURE [None]
  - LIMB INJURY [None]
  - PUBIS FRACTURE [None]
  - ABDOMINAL INJURY [None]
  - CARDIAC ARREST [None]
  - COAGULOPATHY [None]
  - NECROTISING FASCIITIS [None]
  - MALNUTRITION [None]
  - SEPTIC SHOCK [None]
  - SKELETAL INJURY [None]
  - FRACTURED SACRUM [None]
